FAERS Safety Report 11655279 (Version 1)
Quarter: 2015Q4

REPORT INFORMATION
  Report Type: Spontaneous
  Country: CH (occurrence: CH)
  Receive Date: 20151023
  Receipt Date: 20151023
  Transmission Date: 20160304
  Serious: Yes (Death)
  Sender: FDA-Public Use
  Company Number: CH-JNJFOC-20151015568

PATIENT
  Age: 89 Year
  Sex: Female
  Weight: 49 kg

DRUGS (15)
  1. CIPRALEX [Suspect]
     Active Substance: ESCITALOPRAM OXALATE
     Indication: PRODUCT USED FOR UNKNOWN INDICATION
     Route: 065
     Dates: start: 20150520
  2. ASPIRIN CARDIO [Concomitant]
     Active Substance: ASPIRIN
     Route: 065
     Dates: start: 20110908
  3. EUTHYROX [Concomitant]
     Active Substance: LEVOTHYROXINE SODIUM
     Route: 065
     Dates: start: 20150513, end: 20150527
  4. TEMESTA [Concomitant]
     Active Substance: LORAZEPAM
     Dosage: 13/05/15, 15/05/15, 16/05/15, 21/05/15, 27/05/15
     Route: 065
  5. COVERSUM [Concomitant]
     Active Substance: PERINDOPRIL
     Dosage: 10 MG/DAY FROM 21-MAY-2015 TO 28-MAY-2015.
     Route: 065
     Dates: start: 20110908, end: 20150420
  6. RIVASTIGMINE. [Concomitant]
     Active Substance: RIVASTIGMINE
     Dosage: ONCE DAILY.
     Route: 065
     Dates: start: 20150515, end: 20150527
  7. RISPERDAL [Suspect]
     Active Substance: RISPERIDONE
     Indication: PRODUCT USED FOR UNKNOWN INDICATION
     Route: 048
     Dates: start: 20150505, end: 20150507
  8. RISPERDAL [Suspect]
     Active Substance: RISPERIDONE
     Indication: PRODUCT USED FOR UNKNOWN INDICATION
     Route: 048
     Dates: start: 20150508, end: 20150528
  9. RISPERDAL [Suspect]
     Active Substance: RISPERIDONE
     Indication: PRODUCT USED FOR UNKNOWN INDICATION
     Route: 048
  10. NOVALGIN [Concomitant]
     Active Substance: METAMIZOLE SODIUM
     Route: 065
     Dates: start: 20150520, end: 20150521
  11. LACTATED RINGERS [Concomitant]
     Active Substance: CALCIUM CHLORIDE\POTASSIUM CHLORIDE\SODIUM CHLORIDE\SODIUM LACTATE
     Route: 062
     Dates: start: 20150526, end: 20150527
  12. SEROQUEL [Suspect]
     Active Substance: QUETIAPINE FUMARATE
     Indication: PRODUCT USED FOR UNKNOWN INDICATION
     Route: 065
  13. ADALAT [Concomitant]
     Active Substance: NIFEDIPINE
     Route: 065
     Dates: start: 20150519
  14. MORPHINE [Concomitant]
     Active Substance: MORPHINE
     Route: 065
     Dates: start: 20150527
  15. ATORVASTATIN [Concomitant]
     Active Substance: ATORVASTATIN
     Route: 065
     Dates: start: 20150413, end: 20150523

REACTIONS (2)
  - General physical health deterioration [Fatal]
  - Cardiac failure [Fatal]

NARRATIVE: CASE EVENT DATE: 20150526
